FAERS Safety Report 5013874-0 (Version None)
Quarter: 2006Q2

REPORT INFORMATION
  Report Type: 
  Country: None (occurrence: None)
  Receive Date: 20060525
  Receipt Date: 20060509
  Transmission Date: 20061013
  Serious: Yes (Other)
  Sender: FDA-Public Use
  Company Number: JP200605002218

PATIENT
  Age: 40 Year
  Sex: Male

DRUGS (2)
  1. HUMALOG MIX 75/25 [Suspect]
     Indication: DIABETES MELLITUS NON-INSULIN-DEPENDENT
     Dosage: 36 U, SUBCUTANEOUS
     Route: 058
     Dates: start: 20060221, end: 20060509
  2. HUMALOG MIX 25L / 75NPL PEN [Concomitant]

REACTIONS (3)
  - INJECTION SITE URTICARIA [None]
  - URTICARIA [None]
  - VOMITING [None]
